FAERS Safety Report 8561753-4 (Version None)
Quarter: 2012Q3

REPORT INFORMATION
  Report Type: 
  Country: None (occurrence: None)
  Receive Date: 20120802
  Receipt Date: 20120726
  Transmission Date: 20120928
  Serious: Yes (Other)
  Sender: FDA-Public Use
  Company Number: BR-ABBOTT-12P-020-0962108-00

PATIENT
  Sex: Female
  Weight: 90 kg

DRUGS (7)
  1. HUMIRA [Suspect]
     Indication: RHEUMATOID ARTHRITIS
     Route: 058
     Dates: start: 20120501
  2. OMEPRAZOLE [Concomitant]
     Indication: RHEUMATOID ARTHRITIS
     Route: 048
  3. PREDNISONE [Concomitant]
     Indication: RHEUMATOID ARTHRITIS
     Route: 048
  4. METHOTREXATE [Concomitant]
     Indication: RHEUMATOID ARTHRITIS
     Route: 048
  5. LORNOXICAM [Concomitant]
     Indication: ANTIINFLAMMATORY THERAPY
     Route: 048
  6. TRAMADOL HYDROCHLORIDE [Concomitant]
     Indication: ANTIINFLAMMATORY THERAPY
     Route: 048
  7. FOLIC ACID [Concomitant]
     Indication: RHEUMATOID ARTHRITIS
     Route: 048

REACTIONS (6)
  - TENDON RUPTURE [None]
  - MOBILITY DECREASED [None]
  - INFECTION [None]
  - NAUSEA [None]
  - COUGH [None]
  - FATIGUE [None]
